FAERS Safety Report 5345170-6 (Version None)
Quarter: 2007Q2

REPORT INFORMATION
  Report Type: 
  Country: None (occurrence: None)
  Receive Date: 20070401
  Receipt Date: 20070305
  Transmission Date: 20071010
  Serious: Yes (Other)
  Sender: FDA-Public Use
  Company Number: 0702-114

PATIENT
  Sex: Female

DRUGS (10)
  1. ALBUTEROL SULFATE AUTOHALER [Suspect]
     Indication: ASTHMA
     Dosage: 2 VIALS, INHALED
     Route: 055
  2. XANAX [Concomitant]
  3. FORADIL [Concomitant]
  4. PREVACID [Concomitant]
  5. ADVAIR DISKUS 100/50 [Concomitant]
  6. ZYRTEC [Concomitant]
  7. NASONEX SPRAY PRN [Concomitant]
  8. CENTRUM SILVER [Concomitant]
  9. CALCIUM CHLORIDE [Concomitant]
  10. OVER-THE-COUNTER DRUGS (VITAMIN C AND MULTIVITAMINS) [Concomitant]

REACTIONS (3)
  - DYSGEUSIA [None]
  - ORAL DISCOMFORT [None]
  - THROAT IRRITATION [None]
